FAERS Safety Report 17351871 (Version 2)
Quarter: 2020Q1

REPORT INFORMATION
  Report Type: Spontaneous
  Country: US (occurrence: US)
  Receive Date: 20200130
  Receipt Date: 20200229
  Transmission Date: 20200409
  Serious: Yes (Hospitalization)
  Sender: FDA-Public Use
  Company Number: US-TEVA-2020-US-1175591

PATIENT
  Age: 60 Year
  Sex: Male

DRUGS (1)
  1. PROPOFOL. [Suspect]
     Active Substance: PROPOFOL
     Indication: SEDATIVE THERAPY
     Dosage: CENTRAL VENOUS CATHETER MISPLACEMENT INTO THE RIGHT PLEURAL SPACE
     Route: 050

REACTIONS (2)
  - Incorrect route of product administration [Unknown]
  - Pleural effusion [Recovering/Resolving]
